FAERS Safety Report 5128793-9 (Version None)
Quarter: 2006Q4

REPORT INFORMATION
  Report Type: 
  Country: None (occurrence: None)
  Receive Date: 20061017
  Receipt Date: 20060824
  Transmission Date: 20070319
  Serious: Yes (Life-Threatening)
  Sender: FDA-Public Use
  Company Number: JP-SANOFI-SYNTHELABO-A01200607105

PATIENT
  Sex: Male
  Weight: 48 kg

DRUGS (3)
  1. ISOVORIN [Concomitant]
     Route: 041
     Dates: start: 20060815, end: 20060815
  2. OXALIPLATIN [Suspect]
     Indication: LARGE INTESTINE CARCINOMA
     Route: 042
     Dates: start: 20060815, end: 20060815
  3. FLUOROURACIL [Suspect]
     Route: 042
     Dates: start: 20060815, end: 20060816

REACTIONS (5)
  - CONVULSION [None]
  - DECUBITUS ULCER [None]
  - FALL [None]
  - HYPERAMMONAEMIA [None]
  - LOSS OF CONSCIOUSNESS [None]
